FAERS Safety Report 24404679 (Version 1)
Quarter: 2024Q4

REPORT INFORMATION
  Report Type: Spontaneous
  Country: CN (occurrence: CN)
  Receive Date: 20241007
  Receipt Date: 20241007
  Transmission Date: 20250114
  Serious: Yes (Hospitalization)
  Sender: PURACAP
  Company Number: CN-PURACAP-CN-2024EPCLIT01188

PATIENT

DRUGS (1)
  1. DOXYCYCLINE HYCLATE [Suspect]
     Active Substance: DOXYCYCLINE HYCLATE
     Indication: Lymphatic malformation
     Route: 065

REACTIONS (2)
  - Haemorrhagic cyst [Recovering/Resolving]
  - Product use in unapproved indication [Unknown]
